FAERS Safety Report 6383504-4 (Version None)
Quarter: 2009Q4

REPORT INFORMATION
  Report Type: 
  Country: None (occurrence: None)
  Receive Date: 20091001
  Receipt Date: 20090925
  Transmission Date: 20100525
  Serious: Yes (Hospitalization)
  Sender: FDA-Public Use
  Company Number: TR-ELI_LILLY_AND_COMPANY-TR200909005904

PATIENT
  Sex: Male

DRUGS (8)
  1. HUMALOG MIX 50/50 [Suspect]
     Indication: DIABETES MELLITUS
     Dosage: UNK UNK, 2/D
     Route: 058
     Dates: start: 20090413
  2. HUMALOG MIX 50/50 [Suspect]
     Dosage: 16 U, EACH EVENING
     Route: 058
     Dates: start: 20090413
  3. LANSOR [Concomitant]
     Dosage: UNK UNK, DAILY (1/D)
     Route: 048
  4. METFORMIN HCL [Concomitant]
     Dosage: UNK UNK, 2/D
     Route: 048
  5. EXFORGE /02626001/ [Concomitant]
     Dosage: UNK UNK, DAILY (1/D)
     Route: 048
  6. RAMIPRIL [Concomitant]
     Dosage: 5 MG, DAILY (1/D)
     Route: 048
  7. CARDURA [Concomitant]
     Dosage: 4 MG, DAILY (1/D)
  8. CORASPIN [Concomitant]

REACTIONS (1)
  - BLOOD GLUCOSE INCREASED [None]
